FAERS Safety Report 8554215-1 (Version None)
Quarter: 2012Q3

REPORT INFORMATION
  Report Type: 
  Country: None (occurrence: None)
  Receive Date: 20120731
  Receipt Date: 20120720
  Transmission Date: 20120928
  Serious: Yes (Other)
  Sender: FDA-Public Use
  Company Number: AT-TEVA-350699ISR

PATIENT
  Sex: Female
  Weight: 82 kg

DRUGS (2)
  1. PRAMIPEXOLE HYDROCHLORIDE MONOHYDRATE TEVA (0,7 MG TABLETTEN) [Suspect]
     Indication: RESTLESS LEGS SYNDROME
     Dosage: 1.4 MILLIGRAM; 0/0/2
     Dates: start: 20120515, end: 20120710
  2. MAGNOSOLV [Concomitant]

REACTIONS (1)
  - RESTLESS LEGS SYNDROME [None]
